FAERS Safety Report 7822092-X (Version None)
Quarter: 2011Q4

REPORT INFORMATION
  Report Type: 
  Country: None (occurrence: None)
  Receive Date: 20111018
  Receipt Date: 20111012
  Transmission Date: 20120403
  Serious: Yes (Hospitalization, Other)
  Sender: FDA-Public Use
  Company Number: PHHY2010CA15250

PATIENT
  Sex: Female

DRUGS (4)
  1. SANDOSTATIN LAR [Suspect]
     Indication: ACROMEGALY
     Dosage: 40 MG ONCE A MONTH
     Route: 030
     Dates: start: 20070123, end: 20071129
  2. SANDOSTATIN LAR [Suspect]
     Dosage: 10 MG, EVERY 10 DAYS
     Route: 030
  3. SANDOSTATIN LAR [Suspect]
     Dosage: 40 MG, EVERY 4 WEEKS
     Route: 030
  4. CHEMOTHERAPEUTICS NOS [Concomitant]
     Dosage: UNK UKN, UNK

REACTIONS (10)
  - VISUAL ACUITY REDUCED [None]
  - CHEST PAIN [None]
  - PNEUMONIA [None]
  - METASTASES TO ABDOMINAL CAVITY [None]
  - PULMONARY EMBOLISM [None]
  - NAUSEA [None]
  - PLEURAL EFFUSION [None]
  - PANCREATIC NEOPLASM [None]
  - NEOPLASM RECURRENCE [None]
  - NEOPLASM MALIGNANT [None]
